FAERS Safety Report 16518391 (Version 1)
Quarter: 2019Q3

REPORT INFORMATION
  Report Type: Spontaneous
  Country: US (occurrence: US)
  Receive Date: 20190702
  Receipt Date: 20190702
  Transmission Date: 20191004
  Serious: No
  Sender: FDA-Public Use
  Company Number: US-PFIZER INC-2019280063

PATIENT
  Age: 50 Year
  Sex: Female
  Weight: 82.1 kg

DRUGS (1)
  1. LYRICA [Suspect]
     Active Substance: PREGABALIN
     Indication: NEUROPATHY PERIPHERAL
     Dosage: 200 MG, 2X/DAY

REACTIONS (3)
  - Pruritus [Unknown]
  - Burning sensation [Unknown]
  - Gait inability [Unknown]
